FAERS Safety Report 10101659 (Version 2)
Quarter: 2014Q2

REPORT INFORMATION
  Report Type: Spontaneous
  Country: US (occurrence: US)
  Receive Date: 20140424
  Receipt Date: 20140619
  Transmission Date: 20141212
  Serious: No
  Sender: FDA-Public Use
  Company Number: US-009507513-1404USA010734

PATIENT
  Sex: Female
  Weight: 85.26 kg

DRUGS (1)
  1. OXYTROL FOR WOMEN [Suspect]
     Indication: URINARY INCONTINENCE
     Dosage: 1 DF, Q4D
     Route: 062
     Dates: start: 201401, end: 20140331

REACTIONS (8)
  - Application site pain [Recovered/Resolved]
  - Urticaria [Unknown]
  - Skin irritation [Unknown]
  - Pruritus [Recovered/Resolved]
  - Application site warmth [Recovered/Resolved]
  - Erythema [Recovered/Resolved]
  - Inappropriate schedule of drug administration [Unknown]
  - Drug administration error [Unknown]
